FAERS Safety Report 12985684 (Version 1)
Quarter: 2016Q4

REPORT INFORMATION
  Report Type: Spontaneous
  Country: US (occurrence: US)
  Receive Date: 20161130
  Receipt Date: 20161130
  Transmission Date: 20170207
  Serious: Yes (Other)
  Sender: FDA-Public Use
  Company Number: US-CLINIGEN GROUP PLC/ CLINIGEN HEALTHCARE LTD-E2B_00006227

PATIENT
  Sex: Female

DRUGS (2)
  1. FOSCAVIR [Suspect]
     Active Substance: FOSCARNET SODIUM
     Indication: CYTOMEGALOVIRUS CHORIORETINITIS
     Dosage: DOSE: 5  TOTAL DAILY DOSE: 10
     Route: 042
  2. FOSCAVIR [Suspect]
     Active Substance: FOSCARNET SODIUM
     Route: 031

REACTIONS (2)
  - Dysuria [Recovered/Resolved]
  - Cystitis haemorrhagic [Recovered/Resolved]
